FAERS Safety Report 7399304-2 (Version None)
Quarter: 2011Q2

REPORT INFORMATION
  Report Type: 
  Country: None (occurrence: None)
  Receive Date: 20110407
  Receipt Date: 20110324
  Transmission Date: 20111010
  Serious: Yes (Other)
  Sender: FDA-Public Use
  Company Number: US-MYLANLABS-2011S1006368

PATIENT
  Age: 21 Year
  Sex: Female

DRUGS (7)
  1. VORICONAZOLE [Interacting]
     Route: 042
  2. TRETINOIN [Interacting]
     Indication: ACUTE PROMYELOCYTIC LEUKAEMIA
     Dosage: 40MG TWICE DAILY
     Route: 048
  3. CILASTATIN W/IMIPENEM [Concomitant]
     Indication: STAPHYLOCOCCAL INFECTION
     Route: 065
  4. IDARUBICIN HCL [Concomitant]
     Indication: ACUTE PROMYELOCYTIC LEUKAEMIA
     Route: 065
  5. VORICONAZOLE [Suspect]
     Indication: STAPHYLOCOCCAL INFECTION
     Dosage: ON DAY 1 OF TREATMENT, THEN 4 MG/KG EVERY 12 HOURS
     Route: 042
  6. VANCOMYCIN [Concomitant]
     Indication: STAPHYLOCOCCAL INFECTION
     Route: 065
  7. PANTOPRAZOLE [Concomitant]
     Route: 065

REACTIONS (2)
  - DRUG INTERACTION [None]
  - BENIGN INTRACRANIAL HYPERTENSION [None]
